FAERS Safety Report 21737431 (Version 1)
Quarter: 2022Q4

REPORT INFORMATION
  Report Type: Spontaneous
  Country: US (occurrence: US)
  Receive Date: 20221216
  Receipt Date: 20221216
  Transmission Date: 20230112
  Serious: Yes (Other)
  Sender: FDA-Public Use
  Company Number: US-ALKEM LABORATORIES LIMITED-US-ALKEM-2022-13978

PATIENT
  Age: 76 Year
  Sex: Female

DRUGS (1)
  1. VENLAFAXINE [Suspect]
     Active Substance: VENLAFAXINE HYDROCHLORIDE
     Indication: Product used for unknown indication
     Dosage: 75 MILLIGRAM, QD, (EXTENDED RELEASE)
     Route: 065

REACTIONS (4)
  - Cataplexy [Recovered/Resolved]
  - Gastroenteritis [Recovered/Resolved]
  - Withdrawal syndrome [Unknown]
  - Hypertension [Unknown]
